APPROVED DRUG PRODUCT: TRANDATE
Active Ingredient: LABETALOL HYDROCHLORIDE
Strength: 5MG/ML **Federal Register determination that product was not discontinued or withdrawn for safety or effectiveness reasons**
Dosage Form/Route: INJECTABLE;INJECTION
Application: N019425 | Product #001
Applicant: SEBELA IRELAND LTD
Approved: Dec 31, 1985 | RLD: Yes | RS: No | Type: DISCN